FAERS Safety Report 8074495-9 (Version None)
Quarter: 2012Q1

REPORT INFORMATION
  Report Type: 
  Country: None (occurrence: None)
  Receive Date: 20120126
  Receipt Date: 20120119
  Transmission Date: 20120608
  Serious: Yes (Life-Threatening, Hospitalization, Other)
  Sender: FDA-Public Use
  Company Number: FR-PFIZER INC-K201101098

PATIENT
  Age: 71 Year
  Sex: Male

DRUGS (8)
  1. PHENOBARBITAL TAB [Concomitant]
     Dosage: UNK
  2. MORPHINE SULFATE [Concomitant]
     Dosage: UNK
  3. MORPHINE SULFATE [Concomitant]
     Dosage: UNK
  4. ALLOPURINOL [Concomitant]
     Dosage: UNK
  5. RAMIPRIL [Suspect]
     Dosage: UNK
     Route: 048
  6. LASIX [Suspect]
     Dosage: UNK
     Route: 048
     Dates: end: 20110715
  7. PREVISCAN [Concomitant]
     Dosage: UNK
  8. DIGOXIN [Concomitant]
     Dosage: UNK

REACTIONS (10)
  - HYPOVOLAEMIA [None]
  - DISEASE PRODROMAL STAGE [None]
  - RENAL FAILURE ACUTE [None]
  - MALAISE [None]
  - HYPOTENSION [None]
  - ANURIA [None]
  - NORMOCHROMIC NORMOCYTIC ANAEMIA [None]
  - DIARRHOEA [None]
  - LOSS OF CONSCIOUSNESS [None]
  - HYPERKALAEMIA [None]
